FAERS Safety Report 10514771 (Version 1)
Quarter: 2014Q4

REPORT INFORMATION
  Report Type: Spontaneous
  Country: SE (occurrence: SE)
  Receive Date: 20141013
  Receipt Date: 20141013
  Transmission Date: 20150528
  Serious: Yes (Life-Threatening, Hospitalization)
  Sender: FDA-Public Use
  Company Number: SE-ABBVIE-14P-150-1294975-00

PATIENT
  Age: 24 Year
  Sex: Female

DRUGS (2)
  1. ZOPICLONE [Concomitant]
     Active Substance: ZOPICLONE
     Indication: PRODUCT USED FOR UNKNOWN INDICATION
  2. ERGENYL RETARD [Suspect]
     Active Substance: VALPROIC ACID
     Indication: BIPOLAR II DISORDER
     Route: 048
     Dates: start: 20140617

REACTIONS (2)
  - Suicide attempt [Recovered/Resolved]
  - Transient psychosis [Recovered/Resolved]

NARRATIVE: CASE EVENT DATE: 20140702
